FAERS Safety Report 25184545 (Version 1)
Quarter: 2025Q2

REPORT INFORMATION
  Report Type: Spontaneous
  Country: US (occurrence: None)
  Receive Date: 20250409
  Receipt Date: 20250409
  Transmission Date: 20250717
  Serious: No
  Sender: FDA-CTU
  Company Number: None

PATIENT
  Age: 61 Year
  Sex: Female

DRUGS (2)
  1. TYMLOS [Suspect]
     Active Substance: ABALOPARATIDE
  2. TYMLOS [Concomitant]
     Active Substance: ABALOPARATIDE

REACTIONS (2)
  - Expired product administered [None]
  - Incorrect product administration duration [None]

NARRATIVE: CASE EVENT DATE: 20250409
